FAERS Safety Report 19865711 (Version 1)
Quarter: 2021Q3

REPORT INFORMATION
  Report Type: Spontaneous
  Country: US (occurrence: US)
  Receive Date: 20210922
  Receipt Date: 20210922
  Transmission Date: 20211014
  Serious: Yes (Hospitalization)
  Sender: FDA-Public Use
  Company Number: None

PATIENT
  Age: 21 Year
  Sex: Female
  Weight: 56.25 kg

DRUGS (1)
  1. NUVARING [Suspect]
     Active Substance: ETHINYL ESTRADIOL\ETONOGESTREL
     Indication: CONTRACEPTION
     Dosage: ?          QUANTITY:1 RING;OTHER FREQUENCY:MONTHLY;?
     Route: 067

REACTIONS (6)
  - Costochondritis [None]
  - Pulmonary embolism [None]
  - Pain [None]
  - Pulmonary infarction [None]
  - Gastrooesophageal reflux disease [None]
  - Haemothorax [None]

NARRATIVE: CASE EVENT DATE: 20130424
